FAERS Safety Report 10175796 (Version 3)
Quarter: 2014Q2

REPORT INFORMATION
  Report Type: Spontaneous
  Country: JP (occurrence: JP)
  Receive Date: 20140516
  Receipt Date: 20140623
  Transmission Date: 20141212
  Serious: Yes (Hospitalization)
  Sender: FDA-Public Use
  Company Number: JP-ASTRAZENECA-2014SE32088

PATIENT
  Sex: 0

DRUGS (2)
  1. CRESTOR [Suspect]
     Route: 048
  2. NORVASC [Concomitant]

REACTIONS (1)
  - Myocardial infarction [Unknown]
